FAERS Safety Report 4273044-0 (Version None)
Quarter: 2004Q1

REPORT INFORMATION
  Report Type: 
  Country: None (occurrence: None)
  Receive Date: 20040114
  Receipt Date: 20040107
  Transmission Date: 20041129
  Serious: Yes (Death)
  Sender: FDA-Public Use
  Company Number: 2004-BP-00055NB (0)

PATIENT

DRUGS (2)
  1. MEXITIL (MEXILETINE HYDROCHLORIDE) (AM) (MEXILETINE-HCL) [Suspect]
     Dosage: NR (RT, 125 MG/5 ML, A FEW YEARS AGO
     Route: 042
  2. ANTIARRHYTHMICS AGENTS [Concomitant]

REACTIONS (1)
  - VENTRICULAR TACHYCARDIA [None]
